FAERS Safety Report 5506822-8 (Version None)
Quarter: 2007Q4

REPORT INFORMATION
  Report Type: 
  Country: None (occurrence: None)
  Receive Date: 20071105
  Receipt Date: 20071025
  Transmission Date: 20080405
  Serious: Yes (Hospitalization)
  Sender: FDA-Public Use
  Company Number: BE-JNJFOC-20071007181

PATIENT
  Age: 26 Year
  Sex: Male

DRUGS (2)
  1. INFLIXIMAB [Suspect]
     Indication: ENTEROCOLITIS HAEMORRHAGIC
     Dosage: INFUSIONS AT WEEK 0, 2, 6, AND THEREFORE EVERY 8 WEEKS
     Route: 042
  2. IMURAN [Concomitant]

REACTIONS (1)
  - TESTICULAR EMBRYONAL CARCINOMA STAGE III [None]
